FAERS Safety Report 8585745-4 (Version None)
Quarter: 2012Q3

REPORT INFORMATION
  Report Type: 
  Country: None (occurrence: None)
  Receive Date: 20120810
  Receipt Date: 20120717
  Transmission Date: 20120928
  Serious: Yes (Hospitalization)
  Sender: FDA-Public Use
  Company Number: JP-009507513-1207JPN000194

PATIENT

DRUGS (9)
  1. PEG-INTRON [Suspect]
     Dosage: 0.72 MCG/KG/WEEK
     Route: 058
     Dates: start: 20120125, end: 20120125
  2. PEG-INTRON [Suspect]
     Dosage: 100 MCG/WEEK
     Route: 058
     Dates: start: 20120612, end: 20120625
  3. PEG-INTRON [Suspect]
     Dosage: 1.45 MCG/KG/WEEK
     Route: 058
     Dates: start: 20120612, end: 20120612
  4. REBETOL [Suspect]
     Indication: HEPATITIS C
     Dosage: 800 MG, QD
     Route: 048
     Dates: start: 20120111, end: 20120125
  5. TELAVIC [Suspect]
     Indication: HEPATITIS C
     Route: 048
     Dates: start: 20120111, end: 20120125
  6. URSO 250 [Concomitant]
     Indication: HEPATITIS C
     Route: 048
  7. URSO 250 [Concomitant]
     Route: 048
  8. REBETOL [Suspect]
     Dosage: 400 MG, BID
     Route: 048
     Dates: start: 20120612, end: 20120625
  9. PEG-INTRON [Suspect]
     Indication: HEPATITIS C
     Dosage: 1.44 MCG/KG/WEEK
     Route: 058
     Dates: start: 20120111, end: 20120118

REACTIONS (7)
  - LEUKOPENIA [None]
  - ERYTHEMA [None]
  - PYREXIA [None]
  - THROMBOCYTOPENIA [None]
  - OROPHARYNGEAL DISCOMFORT [None]
  - NEUTROPENIA [None]
  - NEUTROPHIL COUNT DECREASED [None]
